FAERS Safety Report 10086440 (Version 1)
Quarter: 2014Q2

REPORT INFORMATION
  Report Type: Spontaneous
  Country: US (occurrence: None)
  Receive Date: 20140417
  Receipt Date: 20140417
  Transmission Date: 20141212
  Serious: Yes (Hospitalization)
  Sender: FDA-Public Use
  Company Number: None

PATIENT
  Age: 73 Year
  Sex: Female
  Weight: 60.9 kg

DRUGS (3)
  1. CARBOPLATIN 610 MG [Suspect]
  2. PACLITAXEL (TAXOL) 289 MG [Suspect]
  3. DECADRON [Concomitant]

REACTIONS (3)
  - Fatigue [None]
  - Blood glucose increased [None]
  - Drug administration error [None]
